FAERS Safety Report 7336130-4 (Version None)
Quarter: 2011Q1

REPORT INFORMATION
  Report Type: 
  Country: None (occurrence: None)
  Receive Date: 20110302
  Receipt Date: 20110302
  Transmission Date: 20110831
  Serious: Yes (Hospitalization)
  Sender: FDA-Public Use
  Company Number: None

PATIENT
  Age: 73 Year
  Sex: Female

DRUGS (2)
  1. RANITIDINE [Suspect]
     Indication: GASTROOESOPHAGEAL REFLUX DISEASE
     Dosage: 1 TABLET DAILY PO
     Route: 048
  2. RANITIDINE [Suspect]
     Indication: ULCER
     Dosage: 1 TABLET DAILY PO
     Route: 048

REACTIONS (2)
  - DRUG INEFFECTIVE [None]
  - ULCER HAEMORRHAGE [None]
